FAERS Safety Report 9994775 (Version 1)
Quarter: 2014Q1

REPORT INFORMATION
  Report Type: Spontaneous
  Country: AT (occurrence: None)
  Receive Date: 20140306
  Receipt Date: 20140306
  Transmission Date: 20141002
  Serious: Yes (Other)
  Sender: FDA-Public Use
  Company Number: 2014DEPAT00049

PATIENT
  Age: 12 Year
  Sex: Female
  Weight: 44 kg

DRUGS (3)
  1. DEPOCYTE [Suspect]
     Indication: PINEALOBLASTOMA
  2. DEXAMETHASONE (DEXAMETHASONE) [Concomitant]
  3. PROTON PUMP INHIBITORS [Concomitant]

REACTIONS (1)
  - Deafness [None]
